FAERS Safety Report 7534192-2 (Version None)
Quarter: 2011Q2

REPORT INFORMATION
  Report Type: 
  Country: None (occurrence: None)
  Receive Date: 20110608
  Receipt Date: 20061120
  Transmission Date: 20111010
  Serious: Yes (Death)
  Sender: FDA-Public Use
  Company Number: PHHO2006NZ19622

PATIENT
  Sex: Male

DRUGS (6)
  1. MADOPAR [Concomitant]
  2. FOLIC ACID [Concomitant]
  3. LACTULOSE [Concomitant]
  4. SINEMET [Concomitant]
  5. CYCLOPENTHIAZIDE [Concomitant]
  6. CLOZAPINE [Suspect]
     Indication: SCHIZOPHRENIA
     Route: 048
     Dates: start: 19980528

REACTIONS (1)
  - DEATH [None]
